FAERS Safety Report 23415710 (Version 2)
Quarter: 2024Q1

REPORT INFORMATION
  Report Type: Spontaneous
  Country: US (occurrence: US)
  Receive Date: 20240118
  Receipt Date: 20240326
  Transmission Date: 20240410
  Serious: No
  Sender: FDA-Public Use
  Company Number: US-ALCON LABORATORIES-ALC2024US000548

PATIENT
  Sex: Female

DRUGS (2)
  1. PATADAY ONCE DAILY RELIEF [Suspect]
     Active Substance: OLOPATADINE HYDROCHLORIDE
     Dosage: 1 DROP EACH EYE, 4 TO 5 TIMES A DAY
     Route: 047
  2. PATADAY ONCE DAILY RELIEF [Suspect]
     Active Substance: OLOPATADINE HYDROCHLORIDE
     Indication: Product used for unknown indication
     Dosage: 1 DROP EACH EYE, 4 TO 5 TIMES A DAY, 6 BOTTLES WITH SAME LOT
     Route: 047

REACTIONS (4)
  - Overdose [Unknown]
  - Product leakage [Unknown]
  - Off label use [Unknown]
  - Product prescribing issue [Unknown]
